FAERS Safety Report 11942963 (Version 2)
Quarter: 2017Q1

REPORT INFORMATION
  Report Type: Spontaneous
  Country: US (occurrence: US)
  Receive Date: 20160125
  Receipt Date: 20170123
  Transmission Date: 20170428
  Serious: Yes (Death, Hospitalization, Other)
  Sender: FDA-Public Use
  Company Number: US-UNITED THERAPEUTICS-UNT-2015-010680

PATIENT
  Age: 72 Year
  Sex: Female
  Weight: 49.89 kg

DRUGS (3)
  1. REMODULIN [Suspect]
     Active Substance: TREPROSTINIL
     Indication: PULMONARY ARTERIAL HYPERTENSION
     Dosage: UNK
     Route: 041
     Dates: start: 20030101
  2. REMODULIN [Suspect]
     Active Substance: TREPROSTINIL
     Dosage: 0.127 ?G/KG, CONTINUING
     Route: 041
     Dates: start: 20081210
  3. ADCIRCA [Concomitant]
     Active Substance: TADALAFIL
     Indication: PRODUCT USED FOR UNKNOWN INDICATION

REACTIONS (4)
  - Device related infection [Fatal]
  - Bacteraemia [Unknown]
  - Abdominal discomfort [Unknown]
  - Sepsis [Fatal]

NARRATIVE: CASE EVENT DATE: 201508
